FAERS Safety Report 6897921-7 (Version None)
Quarter: 2010Q3

REPORT INFORMATION
  Report Type: 
  Country: None (occurrence: None)
  Receive Date: 20100802
  Receipt Date: 20070810
  Transmission Date: 20110219
  Serious: Yes (Hospitalization, Other)
  Sender: FDA-Public Use
  Company Number: US-PFIZER INC-2007067531

PATIENT
  Sex: Female
  Weight: 50.8 kg

DRUGS (5)
  1. LYRICA [Suspect]
     Indication: NEUROPATHY PERIPHERAL
     Dates: start: 20070720, end: 20070722
  2. SYNTHROID [Concomitant]
     Indication: THYROID DISORDER
     Dates: start: 20030101
  3. PANCREASE [Concomitant]
     Indication: PANCREATITIS CHRONIC
     Dates: start: 20050101
  4. INSULIN ASPART [Concomitant]
     Indication: DIABETES MELLITUS
  5. LANTUS [Concomitant]
     Indication: DIABETES MELLITUS

REACTIONS (6)
  - BACTERIAL INFECTION [None]
  - DYSPHAGIA [None]
  - MEMORY IMPAIRMENT [None]
  - MUSCULAR WEAKNESS [None]
  - MYALGIA [None]
  - PYREXIA [None]
